FAERS Safety Report 21153777 (Version 1)
Quarter: 2022Q3

REPORT INFORMATION
  Report Type: Spontaneous
  Country: US (occurrence: None)
  Receive Date: 20220801
  Receipt Date: 20220801
  Transmission Date: 20221027
  Serious: No
  Sender: FDA-Public Use
  Company Number: 2022A257757

PATIENT
  Age: 822 Month
  Sex: Female
  Weight: 57.2 kg

DRUGS (3)
  1. SYMBICORT [Suspect]
     Active Substance: BUDESONIDE\FORMOTEROL FUMARATE DIHYDRATE
     Indication: Hypoxia
     Dosage: 160/4.5 MCG, VIA RESPIRATORY INHALATION, 2 PUFFS 2 TIMES A DAY
     Route: 055
     Dates: start: 202204
  2. SYMBICORT [Suspect]
     Active Substance: BUDESONIDE\FORMOTEROL FUMARATE DIHYDRATE
     Indication: Dyspnoea
     Dosage: 160/4.5 MCG, VIA RESPIRATORY INHALATION, 2 PUFFS 2 TIMES A DAY
     Route: 055
     Dates: start: 202204
  3. SYMBICORT [Suspect]
     Active Substance: BUDESONIDE\FORMOTEROL FUMARATE DIHYDRATE
     Indication: COVID-19
     Dosage: 160/4.5 MCG, VIA RESPIRATORY INHALATION, 2 PUFFS 2 TIMES A DAY
     Route: 055
     Dates: start: 202204

REACTIONS (6)
  - Confusional state [Unknown]
  - Reading disorder [Unknown]
  - Drug ineffective [Unknown]
  - Product dose omission issue [Unknown]
  - Off label use [Unknown]
  - Device use issue [Unknown]

NARRATIVE: CASE EVENT DATE: 20220401
